FAERS Safety Report 11209610 (Version 1)
Quarter: 2015Q2

REPORT INFORMATION
  Report Type: Spontaneous
  Country: US (occurrence: US)
  Receive Date: 20150622
  Receipt Date: 20150622
  Transmission Date: 20150821
  Serious: No
  Sender: FDA-Public Use
  Company Number: US-TAKEDA-2012-01256

PATIENT
  Sex: Female

DRUGS (2)
  1. VELCADE [Suspect]
     Active Substance: BORTEZOMIB
     Indication: PRODUCT USED FOR UNKNOWN INDICATION
     Route: 042
  2. VELCADE [Suspect]
     Active Substance: BORTEZOMIB
     Route: 058

REACTIONS (3)
  - Asthenia [Recovering/Resolving]
  - Pain [Recovering/Resolving]
  - Neuropathy peripheral [Recovered/Resolved]
